FAERS Safety Report 6282698-9 (Version None)
Quarter: 2009Q3

REPORT INFORMATION
  Report Type: 
  Country: None (occurrence: None)
  Receive Date: 20090724
  Receipt Date: 20090716
  Transmission Date: 20100115
  Serious: Yes (Hospitalization)
  Sender: FDA-Public Use
  Company Number: US-WATSON-2009-05540

PATIENT
  Age: 66 Year
  Sex: Female

DRUGS (1)
  1. GLIPIZIDE (WATSON LABORATORIES) [Suspect]
     Indication: TYPE 2 DIABETES MELLITUS
     Dosage: UNK

REACTIONS (1)
  - LEUKOCYTOCLASTIC VASCULITIS [None]
